FAERS Safety Report 16921395 (Version 4)
Quarter: 2020Q4

REPORT INFORMATION
  Report Type: Spontaneous
  Country: TR (occurrence: TR)
  Receive Date: 20191015
  Receipt Date: 20201231
  Transmission Date: 20210113
  Serious: Yes (Death, Hospitalization, Disabling, Other)
  Sender: FDA-Public Use
  Company Number: TR-SA-2019SA283149

PATIENT

DRUGS (15)
  1. PAROL [Concomitant]
     Active Substance: ACETAMINOPHEN
     Dosage: 1.1 UNK
     Route: 048
  2. CRESTOR [Concomitant]
     Active Substance: ROSUVASTATIN CALCIUM
     Dosage: 1.1 UNK
     Route: 065
  3. LEMTRADA [Suspect]
     Active Substance: ALEMTUZUMAB
     Indication: RELAPSING-REMITTING MULTIPLE SCLEROSIS
     Dosage: 12 ML, QD
     Route: 041
     Dates: start: 20191008, end: 20191010
  4. DOLADAMON [CODEINE PHOSPHATE;PARACETAMOL] [Concomitant]
     Dosage: 2.1 UNK
     Route: 065
  5. DUXALTA [Concomitant]
     Dosage: 2.1 UNK
     Route: 065
  6. LANSOR [Concomitant]
     Active Substance: LANSOPRAZOLE
     Dosage: 1.1 UNK
     Route: 048
  7. BETASERC [Concomitant]
     Active Substance: BETAHISTINE
     Dosage: 2.1 UNK
     Route: 065
  8. REFRESH [CARMELLOSE] [Concomitant]
     Active Substance: CARBOXYMETHYLCELLULOSE
     Dosage: 3.1 UNK
     Route: 065
  9. FAMPYRA [Concomitant]
     Active Substance: DALFAMPRIDINE
     Dosage: UNK
     Route: 065
  10. ZYRTEC [Concomitant]
     Active Substance: CETIRIZINE HYDROCHLORIDE
     Dosage: 1.1 UNK
     Route: 048
  11. AKLOVIR [Concomitant]
     Dosage: 2.1 UNK
     Route: 065
  12. ALYSE [PREGABALIN] [Concomitant]
     Dosage: 2.1 UNK
     Route: 065
  13. SICCAPROTECT [Concomitant]
     Dosage: 3.1 UNK
     Route: 065
  14. LIORESAL [Concomitant]
     Active Substance: BACLOFEN
     Dosage: 2.1 UNK
     Route: 065
  15. DESYREL [Concomitant]
     Active Substance: TRAZODONE HYDROCHLORIDE
     Dosage: 1.1 UNK
     Route: 065

REACTIONS (6)
  - Bedridden [Unknown]
  - Upper respiratory tract infection [Fatal]
  - Post procedural haemorrhage [Unknown]
  - Gastrostomy [Unknown]
  - Haemorrhage intracranial [Not Recovered/Not Resolved]
  - Blood pressure increased [Unknown]

NARRATIVE: CASE EVENT DATE: 20191008
